FAERS Safety Report 8117912-8 (Version None)
Quarter: 2012Q1

REPORT INFORMATION
  Report Type: 
  Country: None (occurrence: None)
  Receive Date: 20120207
  Receipt Date: 20120124
  Transmission Date: 20120608
  Serious: Yes (Hospitalization, Disabling, Other)
  Sender: FDA-Public Use
  Company Number: PT-RANBAXY-2011RR-50922

PATIENT
  Age: 70 Year
  Sex: Female

DRUGS (3)
  1. SIMVASTATIN [Suspect]
     Indication: PRODUCT USED FOR UNKNOWN INDICATION
     Route: 065
  2. KETOCONAZOLE [Suspect]
     Indication: SKIN LESION
     Route: 065
  3. CYCLOSPORINE [Suspect]
     Indication: SKIN LESION
     Route: 065

REACTIONS (5)
  - RENAL FAILURE ACUTE [None]
  - NEUROTOXICITY [None]
  - RHABDOMYOLYSIS [None]
  - HEPATOTOXICITY [None]
  - DRUG INTERACTION [None]
